FAERS Safety Report 6102587-X (Version None)
Quarter: 2009Q1

REPORT INFORMATION
  Report Type: 
  Country: None (occurrence: None)
  Receive Date: 20090304
  Receipt Date: 20080910
  Transmission Date: 20090719
  Serious: No
  Sender: FDA-Public Use
  Company Number: A0746793A

PATIENT
  Age: 66 Year
  Sex: Female

DRUGS (5)
  1. REQUIP [Suspect]
     Indication: RESTLESS LEGS SYNDROME
     Dosage: 10MG VARIABLE DOSE
     Route: 048
     Dates: start: 20070701
  2. LAMICTAL [Concomitant]
  3. ESTROGEN REPLACEMENT [Concomitant]
  4. CALCIUM [Concomitant]
  5. VITAMIN D [Concomitant]

REACTIONS (1)
  - DRUG ADMINISTRATION ERROR [None]
